FAERS Safety Report 16638408 (Version 1)
Quarter: 2019Q3

REPORT INFORMATION
  Report Type: Spontaneous
  Country: NL (occurrence: DE)
  Receive Date: 20190726
  Receipt Date: 20190726
  Transmission Date: 20191004
  Serious: Yes (Hospitalization)
  Sender: FDA-Public Use
  Company Number: DE-FRESENIUS KABI-FK201908180

PATIENT
  Age: 70 Year
  Sex: Female
  Weight: 68 kg

DRUGS (10)
  1. CALCIUM [Concomitant]
     Active Substance: CALCIUM
     Indication: PRODUCT USED FOR UNKNOWN INDICATION
     Dosage: 500 MG, 1-0-0-0
     Route: 048
  2. RIVAROXABAN [Concomitant]
     Active Substance: RIVAROXABAN
     Indication: PRODUCT USED FOR UNKNOWN INDICATION
     Dosage: 20 MG, 1-0-0-0
     Route: 048
  3. CARBOPLATIN (MANUFACTURER UNKNOWN) [Suspect]
     Active Substance: CARBOPLATIN
     Indication: PRODUCT USED FOR UNKNOWN INDICATION
     Dosage: ACCORDING TO SCHEME, LAST TIME ON 14/MAR/2018 SOLUTION FOR INJECTION/INFUSION
     Route: 042
  4. IFOSFAMIDE. [Suspect]
     Active Substance: IFOSFAMIDE
     Indication: PRODUCT USED FOR UNKNOWN INDICATION
     Dosage: ACCORDING TO SCHEME LAST TIME 14/MAR/2018 SOLUTION FOR INJECTION/INFUSION
     Route: 042
  5. PANTOPRAZOLE [Concomitant]
     Active Substance: PANTOPRAZOLE
     Indication: PRODUCT USED FOR UNKNOWN INDICATION
     Dosage: 20 MG, 1-0-0-0
     Route: 048
  6. RITUXIMAB. [Suspect]
     Active Substance: RITUXIMAB
     Indication: PRODUCT USED FOR UNKNOWN INDICATION
     Dosage: ACCORDING TO SCHEME LAST TIME 13/03/2018 SOLUTION FOR INJECTION/INFUSION
     Route: 042
  7. HYDROCHLOROTHIAZIDE. [Concomitant]
     Active Substance: HYDROCHLOROTHIAZIDE
     Indication: PRODUCT USED FOR UNKNOWN INDICATION
     Dosage: 12.5 MG, 1-0-0-0
     Route: 048
  8. BETA-ACETYLDIGOXIN [Concomitant]
     Active Substance: .BETA.-ACETYLDIGOXIN
     Indication: PRODUCT USED FOR UNKNOWN INDICATION
     Dosage: 0.2 MG, 1-0-0-0
     Route: 048
  9. RAMIPRIL. [Concomitant]
     Active Substance: RAMIPRIL
     Indication: PRODUCT USED FOR UNKNOWN INDICATION
     Dosage: 2.5 MG, 1-0-0-0
     Route: 048
  10. ETOPOSIDE. [Suspect]
     Active Substance: ETOPOSIDE
     Indication: PRODUCT USED FOR UNKNOWN INDICATION
     Dosage: ACCORDING TO SCHEME LAST TIME 15/MAR/2018 SOLUTION FOR INJECTION/INFUSION
     Route: 042

REACTIONS (2)
  - General physical health deterioration [Unknown]
  - Pyrexia [Unknown]
